FAERS Safety Report 20796059 (Version 1)
Quarter: 2022Q2

REPORT INFORMATION
  Report Type: Spontaneous
  Country: US (occurrence: None)
  Receive Date: 20220506
  Receipt Date: 20220506
  Transmission Date: 20220721
  Serious: Yes (Other)
  Sender: FDA-Public Use
  Company Number: None

PATIENT
  Age: 31 Year
  Sex: Female
  Weight: 51.75 kg

DRUGS (1)
  1. QWO [Suspect]
     Active Substance: COLLAGENASE CLOSTRIDIUM HISTOLYTICUM-AAES
     Indication: Cellulite
     Dosage: OTHER FREQUENCY : 3X, 4 WEEKS APART;?OTHER ROUTE : INJECTION INTO FIBROUS BANDS IN FAT OF B;?
     Route: 050

REACTIONS (4)
  - Contusion [None]
  - Nodule [None]
  - Fat tissue decreased [None]
  - Treatment noncompliance [None]

NARRATIVE: CASE EVENT DATE: 20211229
